FAERS Safety Report 19033861 (Version 2)
Quarter: 2021Q1

REPORT INFORMATION
  Report Type: Spontaneous
  Country: US (occurrence: US)
  Receive Date: 20210319
  Receipt Date: 20210325
  Transmission Date: 20210420
  Serious: Yes (Other)
  Sender: FDA-Public Use
  Company Number: US-ELI_LILLY_AND_COMPANY-US202103006239

PATIENT

DRUGS (1)
  1. BAMLANIVIMAB. [Suspect]
     Active Substance: BAMLANIVIMAB
     Indication: COVID-19
     Dosage: UNK UNK, UNKNOWN
     Route: 042

REACTIONS (9)
  - COVID-19 pneumonia [Not Recovered/Not Resolved]
  - Blood pressure decreased [Unknown]
  - Vomiting [Unknown]
  - Nausea [Unknown]
  - Alopecia [Unknown]
  - Tinnitus [Not Recovered/Not Resolved]
  - Asthenia [Unknown]
  - Fatigue [Unknown]
  - Illness [Unknown]
